FAERS Safety Report 13451103 (Version 1)
Quarter: 2017Q2

REPORT INFORMATION
  Report Type: Spontaneous
  Country: US (occurrence: US)
  Receive Date: 20170417
  Receipt Date: 20170417
  Transmission Date: 20170830
  Serious: Yes (Life-Threatening, Hospitalization, Other)
  Sender: FDA-Public Use
  Company Number: None

PATIENT
  Age: 11 Month
  Sex: Male
  Weight: 8 kg

DRUGS (8)
  1. SHUNT [Concomitant]
  2. ZOFRAN ODT [Concomitant]
     Active Substance: ONDANSETRON HYDROCHLORIDE
  3. ATIVAN [Concomitant]
     Active Substance: LORAZEPAM
  4. BROVIAC PORT [Concomitant]
  5. CHEMO [Concomitant]
     Active Substance: UNSPECIFIED INGREDIENT
  6. BABY TEETHING (HYLAND HOMEOPATHIC) [Suspect]
     Active Substance: HOMEOPATHICS
     Indication: TEETHING
     Dosage: ?          QUANTITY:2 TABLET(S);?
     Route: 048
     Dates: end: 20170315
  7. VITAMIN D [Concomitant]
     Active Substance: CHOLECALCIFEROL
  8. BENADRYL [Concomitant]
     Active Substance: DIPHENHYDRAMINE HYDROCHLORIDE

REACTIONS (1)
  - Medulloblastoma [None]

NARRATIVE: CASE EVENT DATE: 20161030
